FAERS Safety Report 12468831 (Version 2)
Quarter: 2016Q2

REPORT INFORMATION
  Report Type: Spontaneous
  Country: IN (occurrence: IN)
  Receive Date: 20160615
  Receipt Date: 20160627
  Transmission Date: 20160815
  Serious: Yes (Death)
  Sender: FDA-Public Use
  Company Number: IN-WATSON-2016-12274

PATIENT
  Age: 40 Year
  Sex: Male

DRUGS (2)
  1. CYCLOSPORINE (UNKNOWN) [Suspect]
     Active Substance: CYCLOSPORINE
     Indication: IMMUNOSUPPRESSION
     Dosage: UNK
     Route: 065
  2. PREDNISOLONE (UNKNOWN) [Suspect]
     Active Substance: PREDNISOLONE
     Indication: IMMUNOSUPPRESSION
     Dosage: UNK
     Route: 065

REACTIONS (3)
  - Post transplant lymphoproliferative disorder [Fatal]
  - Pneumonia fungal [Fatal]
  - Diffuse large B-cell lymphoma [Fatal]
